FAERS Safety Report 7927623-7 (Version None)
Quarter: 2011Q4

REPORT INFORMATION
  Report Type: 
  Country: None (occurrence: None)
  Receive Date: 20111118
  Receipt Date: 20110814
  Transmission Date: 20120403
  Serious: No
  Sender: FDA-Public Use
  Company Number: US-BAYER-2011-075768

PATIENT

DRUGS (1)
  1. ALEVE (CAPLET) [Suspect]
     Dosage: 2 DF, UNK
     Dates: start: 20000101

REACTIONS (1)
  - NO ADVERSE EVENT [None]
